FAERS Safety Report 12176883 (Version 1)
Quarter: 2016Q1

REPORT INFORMATION
  Report Type: Spontaneous
  Country: IT (occurrence: IT)
  Receive Date: 20160314
  Receipt Date: 20160314
  Transmission Date: 20160526
  Serious: Yes (Hospitalization)
  Sender: FDA-Public Use
  Company Number: IT-SA-2016SA048307

PATIENT
  Age: 69 Year
  Sex: Female

DRUGS (6)
  1. VALPRESSION [Concomitant]
     Active Substance: VALSARTAN
  2. ZYLLT [Concomitant]
     Active Substance: CLOPIDOGREL BISULFATE
  3. HUMALOG [Suspect]
     Active Substance: INSULIN LISPRO
     Indication: DIABETES MELLITUS
     Dosage: DOSAGE:20 INTERNATIONAL UNITS (LESS THAN 100) DAILY
     Route: 058
     Dates: start: 20150101, end: 20151012
  4. NORVASC [Concomitant]
     Active Substance: AMLODIPINE BESYLATE
     Dosage: 10 MG TABLETS
  5. LANTUS [Suspect]
     Active Substance: INSULIN GLARGINE
     Indication: DIABETES MELLITUS
     Dosage: DOSAGE:10 INTERNATIONAL UNITS (LESS THAN 100) DAILY
     Route: 058
     Dates: start: 20150101, end: 20151012
  6. LOBIVON [Concomitant]
     Active Substance: NEBIVOLOL HYDROCHLORIDE
     Dosage: 5 MG

REACTIONS (2)
  - Vomiting [Unknown]
  - Asthenia [Unknown]

NARRATIVE: CASE EVENT DATE: 20151012
